FAERS Safety Report 8407403-9 (Version None)
Quarter: 2012Q2

REPORT INFORMATION
  Report Type: 
  Country: None (occurrence: None)
  Receive Date: 20120604
  Receipt Date: 20120529
  Transmission Date: 20120825
  Serious: No
  Sender: FDA-Public Use
  Company Number: US-TEVA-340484USA

PATIENT
  Sex: Male

DRUGS (2)
  1. COPAXONE [Suspect]
     Route: 058
     Dates: start: 20110701
  2. COPAXONE [Suspect]
     Indication: MULTIPLE SCLEROSIS
     Route: 058
     Dates: start: 20110701

REACTIONS (2)
  - MUSCLE SPASMS [None]
  - INJECTION SITE PAIN [None]
